FAERS Safety Report 17661397 (Version 3)
Quarter: 2020Q2

REPORT INFORMATION
  Report Type: Spontaneous
  Country: US (occurrence: US)
  Receive Date: 20200413
  Receipt Date: 20200603
  Transmission Date: 20200713
  Serious: Yes (Hospitalization, Other)
  Sender: FDA-Public Use
  Company Number: US-GLAXOSMITHKLINE-US2020GSK062599

PATIENT
  Sex: Female

DRUGS (2)
  1. LAMICTAL [Suspect]
     Active Substance: LAMOTRIGINE
     Indication: SEIZURE
     Dosage: 8 MG, QD
     Route: 065
  2. LAMICTAL [Suspect]
     Active Substance: LAMOTRIGINE
     Indication: COORDINATION ABNORMAL
     Dosage: 4 MG, QD
     Route: 065

REACTIONS (27)
  - Glaucoma [Unknown]
  - Eye opacity [Unknown]
  - Skin discolouration [Unknown]
  - Dry skin [Unknown]
  - Corneal scar [Unknown]
  - Visual impairment [Unknown]
  - Limbal stem cell deficiency [Unknown]
  - Pyrexia [Unknown]
  - Pruritus [Unknown]
  - Eye movement disorder [Unknown]
  - Retinal detachment [Unknown]
  - Symblepharon [Unknown]
  - Dry eye [Unknown]
  - Rash [Unknown]
  - Corneal perforation [Unknown]
  - Skin lesion [Unknown]
  - Skin exfoliation [Unknown]
  - Entropion [Unknown]
  - Toxic epidermal necrolysis [Unknown]
  - Lip blister [Unknown]
  - Lacrimation increased [Unknown]
  - Stevens-Johnson syndrome [Unknown]
  - Lip swelling [Unknown]
  - Ocular surface disease [Unknown]
  - Eye irritation [Unknown]
  - Angle closure glaucoma [Unknown]
  - Ocular hyperaemia [Unknown]
